FAERS Safety Report 4565419-7 (Version None)
Quarter: 2005Q1

REPORT INFORMATION
  Report Type: 
  Country: None (occurrence: None)
  Receive Date: 20050131
  Receipt Date: 20040319
  Transmission Date: 20050727
  Serious: Yes (Death, Disabling, Other)
  Sender: FDA-Public Use
  Company Number: US-MERCK-0403USA01877

PATIENT
  Age: 54 Year
  Sex: Male
  Weight: 118 kg

DRUGS (9)
  1. VIOXX [Suspect]
     Indication: POST PROCEDURAL PAIN
     Route: 048
     Dates: start: 19991111, end: 19991112
  2. VIOXX [Suspect]
     Route: 048
     Dates: start: 19991112
  3. VIOXX [Suspect]
     Indication: ARTHRITIS
     Route: 048
     Dates: start: 19991111, end: 19991112
  4. VIOXX [Suspect]
     Route: 048
     Dates: start: 19991112
  5. OXYCODONE [Concomitant]
     Route: 048
     Dates: start: 19991108, end: 19991113
  6. DOCUSATE SODIUM [Concomitant]
     Route: 048
     Dates: start: 19991109, end: 19991113
  7. ASCORBIC ACID [Concomitant]
     Route: 048
     Dates: start: 19991108, end: 19991113
  8. FERROUS SULFATE [Concomitant]
     Route: 048
     Dates: start: 19991108, end: 19991113
  9. COUMADIN [Concomitant]
     Route: 065
     Dates: start: 19991110

REACTIONS (32)
  - ARTHRALGIA [None]
  - BLOOD PRESSURE INADEQUATELY CONTROLLED [None]
  - BURNING SENSATION [None]
  - CARDIOMEGALY [None]
  - CORONARY ARTERY ATHEROSCLEROSIS [None]
  - CORONARY ARTERY STENOSIS [None]
  - CORONARY ARTERY THROMBOSIS [None]
  - CYANOSIS [None]
  - DEATH [None]
  - DEPRESSED MOOD [None]
  - DEPRESSION [None]
  - DEVICE FAILURE [None]
  - FATIGUE [None]
  - FEMUR FRACTURE [None]
  - GOUT [None]
  - HIP FRACTURE [None]
  - INJURY [None]
  - INSOMNIA [None]
  - INTERVERTEBRAL DISC PROTRUSION [None]
  - JOINT SWELLING [None]
  - LIMB DISCOMFORT [None]
  - MYOCARDIAL FIBROSIS [None]
  - MYOCARDIAL INFARCTION [None]
  - MYOCARDIAL ISCHAEMIA [None]
  - NEPHROLITHIASIS [None]
  - OEDEMA PERIPHERAL [None]
  - PAIN IN EXTREMITY [None]
  - PULMONARY CONGESTION [None]
  - SLEEP DISORDER [None]
  - SPINAL OSTEOARTHRITIS [None]
  - THERMAL BURN [None]
  - VENTRICULAR HYPERTROPHY [None]
